FAERS Safety Report 8220284 (Version 2)
Quarter: 2012Q4

REPORT INFORMATION
  Report Type: 
  Country: US (occurrence: US)
  Receive Date: 20111101
  Receipt Date: 20121023
  Transmission Date: 20130627
  Serious: No
  Sender: FDA-Public Use
  Company Number: US-AMGEN-USASP2011031007

PATIENT
  Age: 53 Year
  Sex: Female
  Weight: 90.25 kg

DRUGS (6)
  1. ENBREL [Suspect]
     Indication: PRODUCT USED FOR UNKNOWN INDICATION
     Dosage: 50 mg, qwk
     Route: 058
  2. BENAZEPRIL [Concomitant]
     Dosage: 10 mg, UNK
  3. VITAMIN C                          /00008001/ [Concomitant]
     Dosage: 1000 mg, UNK
  4. METOPROLOL [Concomitant]
     Dosage: 25 mg, UNK
  5. CALCIUM [Concomitant]
     Dosage: 500 tablet
  6. VITAMIN D3 [Concomitant]
     Dosage: UNK

REACTIONS (3)
  - Diabetes mellitus [Unknown]
  - Staphylococcal infection [Recovered/Resolved]
  - Bronchitis [Unknown]
